FAERS Safety Report 4890819-5 (Version None)
Quarter: 2006Q1

REPORT INFORMATION
  Report Type: 
  Country: None (occurrence: None)
  Receive Date: 20060123
  Receipt Date: 20060110
  Transmission Date: 20060701
  Serious: Yes (Other)
  Sender: FDA-Public Use
  Company Number: 2006006732

PATIENT
  Sex: Female
  Weight: 44.9061 kg

DRUGS (9)
  1. NEURONTIN [Suspect]
     Indication: CARDIOVASCULAR DISORDER
     Dosage: 600 MG (200 MG, 3 IN 1 D)
     Dates: start: 20020101
  2. LYRICA [Suspect]
     Indication: NEUROPATHY
     Dosage: 150 MG (75 MG, 2 IN 1 D), ORAL
     Route: 048
     Dates: start: 20051101
  3. ANTINEOPLASTIC AGENTS (ANTINEOPLASTIC AGENTS) [Suspect]
     Indication: LUNG NEOPLASM MALIGNANT
     Dates: start: 20050101, end: 20051001
  4. ALBUTEROL SULFATE /IPRATROPIUM BROMIDE (IPRATROPIUM BROMIDE, SALBUTAMO [Concomitant]
  5. VALIUM [Concomitant]
  6. NEXIUM [Concomitant]
  7. ADVAIR DISKUS 100/50 [Concomitant]
  8. COMBIVENT [Concomitant]
  9. ADVIL [Concomitant]

REACTIONS (8)
  - ARRHYTHMIA [None]
  - CATARACT [None]
  - CHRONIC OBSTRUCTIVE PULMONARY DISEASE [None]
  - ECONOMIC PROBLEM [None]
  - EYE INFECTION [None]
  - HIATUS HERNIA [None]
  - LUNG NEOPLASM MALIGNANT [None]
  - NEUROPATHY [None]
